FAERS Safety Report 24023203 (Version 1)
Quarter: 2024Q2

REPORT INFORMATION
  Report Type: Report from Study
  Country: PE (occurrence: PE)
  Receive Date: 20240627
  Receipt Date: 20240627
  Transmission Date: 20240716
  Serious: No
  Sender: FDA-Public Use
  Company Number: PE-ROCHE-3528396

PATIENT
  Age: 36 Year
  Sex: Male
  Weight: 74.0 kg

DRUGS (6)
  1. ALECTINIB [Suspect]
     Active Substance: ALECTINIB
     Indication: Non-small cell lung cancer metastatic
     Dosage: PRIOR INFUSION GIVEN ON DEC/2021, 600MG
     Route: 048
     Dates: start: 20220505
  2. TENOFOVIR [Concomitant]
     Active Substance: TENOFOVIR
     Indication: HIV infection
     Route: 048
     Dates: start: 20210816
  3. LAMIVUDINE [Concomitant]
     Active Substance: LAMIVUDINE
     Indication: HIV infection
     Route: 048
     Dates: start: 20210816
  4. EFAVIRENZ [Concomitant]
     Active Substance: EFAVIRENZ
     Indication: HIV infection
     Dosage: YES
     Route: 048
     Dates: start: 20210816
  5. SERTRALINE [Concomitant]
     Active Substance: SERTRALINE HYDROCHLORIDE
     Indication: Mixed anxiety and depressive disorder
     Dosage: YES
     Route: 048
     Dates: start: 20220918
  6. HALOPERIDOL [Concomitant]
     Active Substance: HALOPERIDOL
     Indication: Mixed anxiety and depressive disorder
     Dosage: YES
     Route: 048
     Dates: start: 20220910

REACTIONS (1)
  - Chronic kidney disease [Not Recovered/Not Resolved]

NARRATIVE: CASE EVENT DATE: 20230901
